FAERS Safety Report 6197661-6 (Version None)
Quarter: 2009Q2

REPORT INFORMATION
  Report Type: 
  Country: None (occurrence: None)
  Receive Date: 20090518
  Receipt Date: 20090430
  Transmission Date: 20091009
  Serious: Yes (Hospitalization)
  Sender: FDA-Public Use
  Company Number: 2008S1011652

PATIENT
  Age: 73 Year
  Sex: Female
  Weight: 88.4514 kg

DRUGS (19)
  1. PHOSPHOSODA         FLAVOR NOT SPECIFIED [Suspect]
     Indication: COLONOSCOPY
     Dosage: 90 ML; TOTAL; PO
     Route: 048
     Dates: start: 20041101, end: 20041101
  2. PREVACID [Concomitant]
  3. AGGRENOX [Concomitant]
  4. TRICOR [Concomitant]
  5. ALLOPURINOL [Concomitant]
  6. AMARYL [Concomitant]
  7. CENTRUM SILVER [Concomitant]
  8. FOSAMAX [Concomitant]
  9. ZYRTEC [Concomitant]
  10. DITROPAN XL [Concomitant]
  11. NORVASC [Concomitant]
  12. ATENOLOL [Concomitant]
  13. PRAVACHOL [Concomitant]
  14. AVOLIDE [Concomitant]
  15. CITRUCEL [Concomitant]
  16. VITAMIN E [Concomitant]
  17. TRIOMEGA [Concomitant]
  18. METOCLOPRAMIDE [Concomitant]
  19. DULCOLAX [Concomitant]

REACTIONS (8)
  - ASTHENIA [None]
  - DYSPNOEA [None]
  - FLUID RETENTION [None]
  - NEPHROPATHY [None]
  - PULMONARY HYPERTENSION [None]
  - PYREXIA [None]
  - RENAL FAILURE ACUTE [None]
  - RENAL FAILURE CHRONIC [None]
